FAERS Safety Report 10006547 (Version 5)
Quarter: 2014Q4

REPORT INFORMATION
  Report Type: Spontaneous
  Country: US (occurrence: US)
  Receive Date: 20140313
  Receipt Date: 20141124
  Transmission Date: 20150528
  Serious: Yes (Hospitalization, Other)
  Sender: FDA-Public Use
  Company Number: US-BAYER-2014-035909

PATIENT
  Age: 36 Year
  Sex: Female
  Weight: 86 kg

DRUGS (10)
  1. TRAZODONE [Concomitant]
     Active Substance: TRAZODONE HYDROCHLORIDE
     Dosage: 100 MG, HS
     Route: 048
     Dates: start: 20120114
  2. BACTRIM [Concomitant]
     Active Substance: SULFAMETHOXAZOLE\TRIMETHOPRIM
     Indication: CELLULITIS
     Dosage: UNK
     Route: 048
     Dates: start: 20120120, end: 20120127
  3. VICODIN [Concomitant]
     Active Substance: ACETAMINOPHEN\HYDROCODONE BITARTRATE
     Indication: PAIN
     Dosage: UNK UNK, QID
     Route: 048
  4. WELLBUTRIN [Concomitant]
     Active Substance: BUPROPION HYDROCHLORIDE
     Dosage: 300 MG, QD
     Route: 048
     Dates: start: 20120118
  5. EFFEXOR [Concomitant]
     Active Substance: VENLAFAXINE HYDROCHLORIDE
     Dosage: 300 MG, QD
     Route: 048
  6. KEFLEX [Concomitant]
     Active Substance: CEPHALEXIN
     Dosage: 500 MG, TID
  7. PEPCID [Concomitant]
     Active Substance: FAMOTIDINE
     Indication: GASTRITIS
     Route: 048
  8. EPIPEN [Concomitant]
     Active Substance: EPINEPHRINE
     Dosage: UNK
     Dates: start: 20120118
  9. CYANOCOBALAMIN. [Concomitant]
     Active Substance: CYANOCOBALAMIN
     Dosage: 1000 MCG/24HR, Q1MON
     Dates: start: 20120118
  10. MIRENA [Suspect]
     Active Substance: LEVONORGESTREL
     Dosage: 20 MCG/24HR, CONT
     Route: 015
     Dates: start: 20101220, end: 20120130

REACTIONS (24)
  - Cardiac arrest [Unknown]
  - Haemorrhage in pregnancy [Unknown]
  - Subcutaneous abscess [Unknown]
  - Weight increased [Unknown]
  - Genital haemorrhage [Unknown]
  - Ectopic pregnancy with contraceptive device [Recovered/Resolved]
  - Product use issue [Unknown]
  - Abdominal pain [Unknown]
  - Immunodeficiency [Unknown]
  - Tachycardia [Unknown]
  - Foreign body [Unknown]
  - Drug ineffective [Unknown]
  - Dizziness [Unknown]
  - Pelvic pain [Unknown]
  - Migraine [Unknown]
  - Autoimmune disorder [Unknown]
  - Ruptured ectopic pregnancy [Recovered/Resolved]
  - Palpitations [Unknown]
  - Pain [Unknown]
  - Nausea [Unknown]
  - Weight decreased [Unknown]
  - Fatigue [Unknown]
  - Patient-device incompatibility [Unknown]
  - Depression [Unknown]

NARRATIVE: CASE EVENT DATE: 20120329
